FAERS Safety Report 17160836 (Version 2)
Quarter: 2019Q4

REPORT INFORMATION
  Report Type: Spontaneous
  Country: SE (occurrence: SE)
  Receive Date: 20191216
  Receipt Date: 20191226
  Transmission Date: 20200122
  Serious: Yes (Hospitalization)
  Sender: FDA-Public Use
  Company Number: SE-PFIZER INC-2019536543

PATIENT
  Age: 41 Year
  Sex: Female

DRUGS (9)
  1. LAMICTAL [Suspect]
     Active Substance: LAMOTRIGINE
     Dosage: 600 MG, UNK
     Route: 048
     Dates: start: 20181026, end: 20181026
  2. PROPAVAN [Suspect]
     Active Substance: PROPIOMAZINE
     Dosage: UNK (20 TABLETS)
     Route: 048
     Dates: start: 20181026, end: 20181026
  3. CAMPRAL [Suspect]
     Active Substance: ACAMPROSATE CALCIUM
     Dosage: 5328 MG, UNK
     Route: 048
     Dates: start: 20181026, end: 20181026
  4. PREGABALIN. [Suspect]
     Active Substance: PREGABALIN
     Dosage: 1.35 G, UNK
     Route: 048
     Dates: start: 20181026, end: 20181026
  5. OLANZAPINE. [Suspect]
     Active Substance: OLANZAPINE
     Dosage: 45 MG, UNK
     Route: 048
     Dates: start: 20181026, end: 20181026
  6. CISORDINOL [ZUCLOPENTHIXOL HYDROCHLORIDE] [Suspect]
     Active Substance: ZUCLOPENTHIXOL
     Dosage: 30 MG, UNK
     Route: 048
     Dates: start: 20181026, end: 20181026
  7. NALTREXONE [Suspect]
     Active Substance: NALTREXONE
     Dosage: 150 MG, UNK
     Route: 048
     Dates: start: 20181026, end: 20181026
  8. ZOPICLONE [Suspect]
     Active Substance: ZOPICLONE
     Dosage: 22.5 MG, UNK
     Route: 048
     Dates: start: 20181026, end: 20181026
  9. STESOLID [Suspect]
     Active Substance: DIAZEPAM
     Dosage: 30 MG, UNK
     Route: 048
     Dates: start: 20181026, end: 20181026

REACTIONS (3)
  - Intentional overdose [Unknown]
  - Intentional self-injury [Unknown]
  - Depressed level of consciousness [Unknown]

NARRATIVE: CASE EVENT DATE: 20181026
